FAERS Safety Report 9103161 (Version 5)
Quarter: 2013Q1

REPORT INFORMATION
  Report Type: Report from Study
  Country: DE (occurrence: DE)
  Receive Date: 20130219
  Receipt Date: 20130319
  Transmission Date: 20140127
  Serious: Yes (Hospitalization, Other)
  Sender: FDA-Public Use
  Company Number: PHHO2013DE002632

PATIENT
  Sex: Female
  Weight: 63 kg

DRUGS (7)
  1. EVEROLIMUS [Suspect]
     Indication: BREAST CANCER METASTATIC
     Dosage: 10 MG, QD
     Route: 048
     Dates: start: 20120921, end: 20130208
  2. EXEMESTANE [Suspect]
     Indication: BREAST CANCER METASTATIC
     Dosage: 25 MG, QD
     Route: 048
     Dates: start: 20120921
  3. GENTAMICIN [Suspect]
     Dosage: 240 MG, QD
     Route: 042
     Dates: start: 20130214
  4. ZOMETA [Concomitant]
     Indication: METASTASES TO BONE
     Dosage: 3 MG, UNK
     Route: 042
     Dates: start: 20090323, end: 20130208
  5. PANTOPRAZOL [Concomitant]
     Indication: PROPHYLAXIS
     Dosage: 20 MG, UNK
     Route: 048
  6. IRBESARTAN [Concomitant]
     Indication: HYPERTONIA
     Dosage: 150 MG, UNK
     Route: 048
     Dates: end: 20130227
  7. METOPROLOL [Concomitant]
     Indication: HYPERTONIA
     Dosage: 95 MG, UNK
     Route: 048
     Dates: end: 20130227

REACTIONS (7)
  - Febrile neutropenia [Recovered/Resolved]
  - Pneumonia [Recovering/Resolving]
  - Renal failure acute [Recovering/Resolving]
  - Hypokalaemia [Recovered/Resolved]
  - Cholelithiasis [Not Recovered/Not Resolved]
  - Cholestasis [Not Recovered/Not Resolved]
  - Hepatic enzyme increased [Recovering/Resolving]
